FAERS Safety Report 11870381 (Version 1)
Quarter: 2015Q4

REPORT INFORMATION
  Report Type: Spontaneous
  Country: DE (occurrence: DE)
  Receive Date: 20151228
  Receipt Date: 20151228
  Transmission Date: 20160305
  Serious: Yes (Other)
  Sender: FDA-Public Use
  Company Number: DE-AUROBINDO-AUR-APL-2015-10887

PATIENT
  Age: 61 Year
  Sex: Male
  Weight: 114 kg

DRUGS (4)
  1. MIRTAZAPINE 15MG [Suspect]
     Active Substance: MIRTAZAPINE
     Indication: PRODUCT USED FOR UNKNOWN INDICATION
     Dosage: 15 MG, DAILY
     Route: 048
     Dates: end: 20150330
  2. VENLAFAXINE [Suspect]
     Active Substance: VENLAFAXINE HYDROCHLORIDE
     Indication: PRODUCT USED FOR UNKNOWN INDICATION
     Dosage: 150 MG, DAILY
     Route: 048
     Dates: start: 2012
  3. VENLAFAXINE [Suspect]
     Active Substance: VENLAFAXINE HYDROCHLORIDE
     Dosage: 300 MG, DAILY
     Route: 048
     Dates: start: 2012
  4. MIRTAZAPINE 15MG [Suspect]
     Active Substance: MIRTAZAPINE
     Dosage: 7.5 MG, DAILY
     Route: 048
     Dates: start: 20150331, end: 20150406

REACTIONS (3)
  - Withdrawal syndrome [Unknown]
  - Weight increased [Not Recovered/Not Resolved]
  - Nightmare [Unknown]

NARRATIVE: CASE EVENT DATE: 20150402
